FAERS Safety Report 12352729 (Version 2)
Quarter: 2016Q2

REPORT INFORMATION
  Report Type: Spontaneous
  Country: US (occurrence: US)
  Receive Date: 20160510
  Receipt Date: 20160510
  Transmission Date: 20160815
  Serious: Yes (Hospitalization, Other)
  Sender: FDA-Public Use
  Company Number: US-UCBSA-2016017225

PATIENT
  Age: 67 Year
  Sex: Male

DRUGS (1)
  1. ATORVASTATIN CALCIUM. [Suspect]
     Active Substance: ATORVASTATIN CALCIUM
     Indication: HYPERLIPIDAEMIA
     Dosage: UNKNOWN DOSE

REACTIONS (4)
  - Blood creatine phosphokinase increased [Recovering/Resolving]
  - Acute myocardial infarction [Unknown]
  - Rhabdomyolysis [Unknown]
  - Immune-mediated necrotising myopathy [Unknown]

NARRATIVE: CASE EVENT DATE: 201508
